FAERS Safety Report 8477178-6 (Version None)
Quarter: 2012Q2

REPORT INFORMATION
  Report Type: 
  Country: None (occurrence: None)
  Receive Date: 20120625
  Receipt Date: 20120625
  Transmission Date: 20120825
  Serious: Yes (Other)
  Sender: FDA-Public Use
  Company Number: None

PATIENT
  Age: 59 Year
  Sex: Female
  Weight: 61.2356 kg

DRUGS (2)
  1. SIMVASTATIN [Suspect]
     Indication: LIPIDS INCREASED
     Dosage: 1 BEDTIME PO
     Route: 048
     Dates: start: 20120614, end: 20120614
  2. GLYBURIDE [Suspect]
     Indication: DIABETES MELLITUS
     Dosage: 1 QD PO
     Route: 048
     Dates: start: 20120531, end: 20120619

REACTIONS (1)
  - DRUG HYPERSENSITIVITY [None]
